FAERS Safety Report 25172062 (Version 1)
Quarter: 2025Q2

REPORT INFORMATION
  Report Type: Spontaneous
  Country: CN (occurrence: None)
  Receive Date: 20250408
  Receipt Date: 20250408
  Transmission Date: 20250717
  Serious: Yes (Hospitalization, Other)
  Sender: ALEXION PHARMACEUTICALS
  Company Number: CN-ASTRAZENECA-202504CHN000866CN

PATIENT
  Age: 60 Year
  Weight: 56 kg

DRUGS (7)
  1. CRESTOR [Suspect]
     Active Substance: ROSUVASTATIN CALCIUM
     Indication: Cerebral infarction
     Dosage: 10 MILLIGRAM, QD
  2. DIHYDROXYALUMINUM AMINOACETATE [Concomitant]
     Active Substance: DIHYDROXYALUMINUM AMINOACETATE
     Indication: Cerebral infarction
  3. MAGNESIUM CARBONATE [Concomitant]
     Active Substance: MAGNESIUM CARBONATE
     Indication: Cerebral infarction
  4. ASPIRIN [Concomitant]
     Active Substance: ASPIRIN
     Indication: Cerebral infarction
  5. PHOSPHOLIPID [Concomitant]
     Active Substance: PHOSPHOLIPID
     Route: 065
  6. GLYCYRRHIZIN [Concomitant]
     Active Substance: GLYCYRRHIZIN
     Route: 065
  7. BICYCLOL [Concomitant]
     Active Substance: BICYCLOL
     Route: 065

REACTIONS (1)
  - Drug-induced liver injury [Recovering/Resolving]
